FAERS Safety Report 7782026-3 (Version None)
Quarter: 2011Q3

REPORT INFORMATION
  Report Type: 
  Country: None (occurrence: None)
  Receive Date: 20110927
  Receipt Date: 20110921
  Transmission Date: 20111222
  Serious: Yes (Hospitalization, Other)
  Sender: FDA-Public Use
  Company Number: PHHO2011DE04945

PATIENT
  Sex: Female
  Weight: 77.6 kg

DRUGS (8)
  1. SIMVASTATIN [Concomitant]
     Indication: HYPERTENSION
     Dosage: 40 MG, UNK
     Dates: end: 20100321
  2. FUROSEMIDE [Concomitant]
     Indication: HYPERTENSION
  3. CARVEDILOL [Concomitant]
     Indication: HYPERTENSION
  4. FELODIPINE [Concomitant]
     Indication: HYPERTENSION
     Dosage: 10 MG, UNK
  5. MARCUMAR [Concomitant]
     Indication: THROMBOSIS PROPHYLAXIS
     Dosage: UNK
  6. MEDIABET [Concomitant]
     Indication: DIABETES MELLITUS
  7. LETROZOLE [Suspect]
     Indication: BREAST CANCER
     Dosage: 2.5 MG, UNK
     Route: 048
     Dates: start: 20070126
  8. LOSARTAN POTASSIUM AND HYDROCHLOROTHIAZIDE [Concomitant]
     Indication: HYPERTENSION

REACTIONS (10)
  - CARDIOVASCULAR DISORDER [None]
  - PAIN IN EXTREMITY [None]
  - DIABETES MELLITUS [None]
  - DYSPNOEA [None]
  - CARDIAC FAILURE [None]
  - ADAMS-STOKES SYNDROME [None]
  - HYPERTENSION [None]
  - GASTROENTERITIS [None]
  - COLITIS [None]
  - HYPERTENSIVE CRISIS [None]
